FAERS Safety Report 5937797-5 (Version None)
Quarter: 2008Q4

REPORT INFORMATION
  Report Type: 
  Country: None (occurrence: None)
  Receive Date: 20081029
  Receipt Date: 20081024
  Transmission Date: 20090506
  Serious: Yes (Death)
  Sender: FDA-Public Use
  Company Number: 2006SP008895

PATIENT
  Age: 83 Year
  Sex: Male
  Weight: 41 kg

DRUGS (7)
  1. TEMODAL [Suspect]
     Indication: GLIOBLASTOMA
     Dosage: 150 MG/M2;QD;PO
     Route: 048
     Dates: start: 20060920, end: 20060924
  2. PREDONINE [Concomitant]
  3. GASTER D [Concomitant]
  4. MUCOSTA [Concomitant]
  5. AMINO ACIDS [Concomitant]
  6. CARBOHYDRATES/MINERALS/VITAMINS [Concomitant]
  7. PENTCILLIN [Concomitant]

REACTIONS (12)
  - ANOREXIA [None]
  - DECREASED ACTIVITY [None]
  - FUNGAL INFECTION [None]
  - HYPOPHAGIA [None]
  - IMMUNODEFICIENCY [None]
  - INTERSTITIAL LUNG DISEASE [None]
  - LYMPHOCYTE COUNT DECREASED [None]
  - MENTAL IMPAIRMENT [None]
  - OPPORTUNISTIC INFECTION [None]
  - PNEUMOCYSTIS JIROVECI PNEUMONIA [None]
  - PNEUMONIA [None]
  - RESPIRATORY FAILURE [None]
